FAERS Safety Report 7596988-0 (Version None)
Quarter: 2011Q3

REPORT INFORMATION
  Report Type: 
  Country: None (occurrence: None)
  Receive Date: 20110708
  Receipt Date: 20110629
  Transmission Date: 20111222
  Serious: Yes (Hospitalization)
  Sender: FDA-Public Use
  Company Number: FR-BRISTOL-MYERS SQUIBB COMPANY-15870157

PATIENT
  Age: 68 Year
  Sex: Male

DRUGS (4)
  1. ONGLYZA [Suspect]
     Indication: TYPE 2 DIABETES MELLITUS
     Dosage: COATED TABLET
     Route: 048
     Dates: start: 20110106, end: 20110520
  2. LANTUS [Concomitant]
     Indication: TYPE 2 DIABETES MELLITUS
     Route: 058
  3. METFORMIN HCL [Concomitant]
     Indication: TYPE 2 DIABETES MELLITUS
     Dosage: 1DF=850 UNITS NOS
     Route: 048
  4. PERINDOPRIL ERBUMINE [Concomitant]
     Indication: HYPERTENSION
     Dosage: COVERSYL 10 MG COATED TABLET
     Route: 048

REACTIONS (1)
  - PANCREATITIS ACUTE [None]
